FAERS Safety Report 9529510 (Version 1)
Quarter: 2013Q1

REPORT INFORMATION
  Report Type: Spontaneous
  Country: US (occurrence: None)
  Receive Date: 20130329
  Receipt Date: 20130329
  Transmission Date: 20140127
  Serious: No
  Sender: FDA-Public Use
  Company Number: 1000041723

PATIENT
  Age: 85 Year
  Sex: Male

DRUGS (2)
  1. LINZESS [Suspect]
     Indication: CONSTIPATION
     Dosage: 290 MCG (290 MCG, 1 IN 1 D), ORAL
     Route: 048
     Dates: start: 20130112
  2. STALEVO (STALEVO) (STALEVO) [Concomitant]

REACTIONS (2)
  - Flatulence [None]
  - Drug ineffective [None]
